FAERS Safety Report 22214772 (Version 3)
Quarter: 2023Q2

REPORT INFORMATION
  Report Type: Report from Study
  Country: US (occurrence: US)
  Receive Date: 20230415
  Receipt Date: 20230504
  Transmission Date: 20230721
  Serious: Yes (Hospitalization)
  Sender: FDA-Public Use
  Company Number: US-ABBVIE-4728634

PATIENT
  Age: 63 Year
  Sex: Male

DRUGS (3)
  1. SKYRIZI [Suspect]
     Active Substance: RISANKIZUMAB-RZAA
     Indication: Psoriasis
     Dosage: FORM STRENGTH: 150 MG
     Route: 058
     Dates: start: 20221014
  2. SKYRIZI [Suspect]
     Active Substance: RISANKIZUMAB-RZAA
     Dosage: FORM STRENGTH: 150 MG?WEEK 4
     Route: 058
     Dates: start: 20220920, end: 202211
  3. SKYRIZI [Suspect]
     Active Substance: RISANKIZUMAB-RZAA
     Dosage: FORM STRENGTH: 150 MG?WEEK 0
     Route: 058
     Dates: start: 20221014, end: 20221014

REACTIONS (2)
  - Myocardial infarction [Unknown]
  - Psoriasis [Unknown]

NARRATIVE: CASE EVENT DATE: 20220428
